FAERS Safety Report 21890364 (Version 3)
Quarter: 2023Q2

REPORT INFORMATION
  Report Type: Spontaneous
  Country: US (occurrence: US)
  Receive Date: 20230120
  Receipt Date: 20230416
  Transmission Date: 20230722
  Serious: Yes (Hospitalization, Other)
  Sender: FDA-Public Use
  Company Number: US-BEH-2023154384

PATIENT
  Sex: Female

DRUGS (1)
  1. HIZENTRA [Suspect]
     Active Substance: HUMAN IMMUNOGLOBULIN G
     Indication: Immunodeficiency common variable
     Dosage: 14 GRAM, QOW
     Route: 058
     Dates: start: 201905

REACTIONS (5)
  - Pulmonary thrombosis [Unknown]
  - Pneumonia [Unknown]
  - Pneumonia [Unknown]
  - Dyspnoea [Unknown]
  - Decreased appetite [Unknown]
